FAERS Safety Report 7532185-2 (Version None)
Quarter: 2011Q2

REPORT INFORMATION
  Report Type: 
  Country: None (occurrence: None)
  Receive Date: 20110601
  Receipt Date: 20110526
  Transmission Date: 20111010
  Serious: Yes (Hospitalization)
  Sender: FDA-Public Use
  Company Number: US-001765

PATIENT
  Sex: Female
  Weight: 103 kg

DRUGS (2)
  1. PRILOSEC [Concomitant]
  2. KUVAN [Suspect]
     Indication: PHENYLKETONURIA
     Dosage: (20 MG/KG QD ORAL)
     Route: 048
     Dates: start: 20091007, end: 20100301

REACTIONS (2)
  - HAEMORRHAGE [None]
  - PERFORATED ULCER [None]
